FAERS Safety Report 6596939-1 (Version None)
Quarter: 2010Q1

REPORT INFORMATION
  Report Type: 
  Country: None (occurrence: None)
  Receive Date: 20100223
  Receipt Date: 20100209
  Transmission Date: 20100710
  Serious: Yes (Disabling)
  Sender: FDA-Public Use
  Company Number: BR-MYLANLABS-2010S1002085

PATIENT
  Age: 15 Year
  Sex: Female

DRUGS (3)
  1. MERCAPTOPURINE [Suspect]
     Indication: ACUTE MYELOID LEUKAEMIA
     Route: 048
  2. METHOTREXATE [Suspect]
     Indication: ACUTE MYELOID LEUKAEMIA
     Route: 048
  3. PREDNISONE [Suspect]
     Indication: ACUTE MYELOID LEUKAEMIA
     Route: 048

REACTIONS (2)
  - OSTEOMYELITIS [None]
  - STOMATITIS NECROTISING [None]
